FAERS Safety Report 6919179-2 (Version None)
Quarter: 2010Q3

REPORT INFORMATION
  Report Type: 
  Country: None (occurrence: None)
  Receive Date: 20100811
  Receipt Date: 20100802
  Transmission Date: 20110219
  Serious: Yes (Other)
  Sender: FDA-Public Use
  Company Number: GB-PFIZER INC-2010097113

PATIENT
  Age: 77 Year
  Sex: Female
  Weight: 96.5 kg

DRUGS (11)
  1. AMLODIPINE BESYLATE [Suspect]
     Indication: HYPERTENSION
     Dosage: 5 MG, UNK
     Route: 048
     Dates: start: 20100719, end: 20100720
  2. ADCAL-D3 [Concomitant]
     Indication: OSTEOPOROSIS PROPHYLAXIS
     Dosage: 2 DF, UNK
     Route: 048
     Dates: start: 20080101
  3. ACETYLSALICYLIC ACID [Concomitant]
     Indication: CARDIOVASCULAR EVENT PROPHYLAXIS
     Dosage: 75 MG, UNK
     Route: 048
     Dates: start: 20080101
  4. ACETYLSALICYLIC ACID [Concomitant]
     Indication: HYPERTENSION
  5. BENDROFLUAZIDE [Concomitant]
     Indication: CARDIOVASCULAR EVENT PROPHYLAXIS
     Dosage: 2.5 MG, UNK
     Route: 048
     Dates: start: 20080101
  6. BENDROFLUAZIDE [Concomitant]
     Indication: HYPERTENSION
  7. ACETAMINOPHEN AND CODEINE PHOSPHATE [Concomitant]
     Indication: PAIN
     Dosage: 2 DF, AS NEEDED
     Route: 048
  8. GAVISCON [Concomitant]
     Indication: GASTROOESOPHAGEAL REFLUX DISEASE
     Dosage: 10 ML, AS NEEDED
     Route: 048
     Dates: start: 20080101
  9. RAMIPRIL [Concomitant]
     Indication: CARDIOVASCULAR EVENT PROPHYLAXIS
     Dosage: 10 MG, UNK
     Route: 048
     Dates: start: 20080101
  10. RAMIPRIL [Concomitant]
     Indication: HYPERTENSION
  11. TEMAZEPAM [Concomitant]
     Indication: SOMNOLENCE
     Dosage: 10 MG, UNK
     Route: 048
     Dates: start: 20080101

REACTIONS (6)
  - HEADACHE [None]
  - HYPERTENSION [None]
  - MALAISE [None]
  - PALLOR [None]
  - TACHYCARDIA [None]
  - TREMOR [None]
